FAERS Safety Report 12919805 (Version 1)
Quarter: 2016Q4

REPORT INFORMATION
  Report Type: Spontaneous
  Country: US (occurrence: US)
  Receive Date: 20161108
  Receipt Date: 20161108
  Transmission Date: 20170207
  Serious: No
  Sender: FDA-Public Use
  Company Number: US-PFIZER INC-2016517073

PATIENT
  Age: 80 Year
  Sex: Female

DRUGS (2)
  1. SUTENT [Suspect]
     Active Substance: SUNITINIB MALATE
     Indication: METASTATIC RENAL CELL CARCINOMA
     Dosage: 25 MG, DAILY X 4 WEEKS
     Route: 048
     Dates: start: 20120914
  2. SUTENT [Suspect]
     Active Substance: SUNITINIB MALATE
     Dosage: 12.5 MG, DAILY, 4 WEEKS ON 2 WEEKS OFF
     Route: 048
     Dates: start: 20121102, end: 201212

REACTIONS (3)
  - Dysgeusia [Unknown]
  - Fatigue [Unknown]
  - Arthralgia [Unknown]
